FAERS Safety Report 5281815-7 (Version None)
Quarter: 2007Q1

REPORT INFORMATION
  Report Type: 
  Country: None (occurrence: None)
  Receive Date: 20070330
  Receipt Date: 20070316
  Transmission Date: 20070707
  Serious: Yes (Death)
  Sender: FDA-Public Use
  Company Number: BE-MERCK-0703BEL00019

PATIENT
  Age: 32 Year
  Sex: Female

DRUGS (2)
  1. PROSCAR [Suspect]
     Dates: start: 20070301, end: 20070301
  2. PROSCAR [Concomitant]
     Dates: start: 20010101, end: 20010101

REACTIONS (3)
  - ABORTION SPONTANEOUS [None]
  - DRUG EXPOSURE DURING PREGNANCY [None]
  - NO ADVERSE EFFECT [None]
